FAERS Safety Report 14750808 (Version 1)
Quarter: 2018Q2

REPORT INFORMATION
  Report Type: Spontaneous
  Country: ES (occurrence: ES)
  Receive Date: 20180412
  Receipt Date: 20180412
  Transmission Date: 20180711
  Serious: Yes (Other)
  Sender: FDA-Public Use
  Company Number: ES-ACCORD-065450

PATIENT
  Age: 35 Year
  Sex: Female

DRUGS (1)
  1. CISPLATIN. [Suspect]
     Active Substance: CISPLATIN
     Indication: ADENOSQUAMOUS CARCINOMA OF THE CERVIX
     Dosage: WEEKLY

REACTIONS (5)
  - Weight decreased [Unknown]
  - Quality of life decreased [Unknown]
  - Diarrhoea [Recovering/Resolving]
  - Magnesium deficiency [Recovering/Resolving]
  - Off label use [Unknown]
